FAERS Safety Report 12492926 (Version 2)
Quarter: 2016Q3

REPORT INFORMATION
  Report Type: Spontaneous
  Country: IE (occurrence: IE)
  Receive Date: 20160623
  Receipt Date: 20160712
  Transmission Date: 20161109
  Serious: Yes (Other)
  Sender: FDA-Public Use
  Company Number: IE-TEVA-669573ISR

PATIENT
  Age: 52 Year
  Sex: Male

DRUGS (3)
  1. NU-SEALS [Concomitant]
     Indication: CARDIOVASCULAR EVENT PROPHYLAXIS
  2. ATORVASTATIN TEVA [Suspect]
     Active Substance: ATORVASTATIN
     Indication: HYPERCHOLESTEROLAEMIA
     Route: 048
  3. RAMIPRIL TEVA PHARMA [Suspect]
     Active Substance: RAMIPRIL
     Indication: HYPERTENSION

REACTIONS (4)
  - Reaction to drug excipients [Unknown]
  - Dermatitis allergic [Not Recovered/Not Resolved]
  - Rash [Not Recovered/Not Resolved]
  - Product substitution issue [Unknown]

NARRATIVE: CASE EVENT DATE: 20160225
